FAERS Safety Report 9829804 (Version 1)
Quarter: 2014Q1

REPORT INFORMATION
  Report Type: Spontaneous
  Country: BR (occurrence: BR)
  Receive Date: 20140120
  Receipt Date: 20140120
  Transmission Date: 20141002
  Serious: Yes (Hospitalization, Other)
  Sender: FDA-Public Use
  Company Number: BR-AMGEN-BRASP2014003636

PATIENT
  Age: 48 Year
  Sex: Female
  Weight: 94 kg

DRUGS (6)
  1. ENBREL [Suspect]
     Indication: RHEUMATOID ARTHRITIS
     Dosage: 50 MG, ONCE WEEKLY
     Route: 058
     Dates: start: 201210, end: 201302
  2. METHOTREXATE [Concomitant]
     Dosage: 25 MG, UNK (STRENGTH 25MG)
     Dates: start: 2008
  3. LOSARTAN [Concomitant]
     Dosage: 50 MG, UNK (STRENGTH 50MG)
     Dates: start: 201207
  4. HYDROCHLOROTHIAZIDE [Concomitant]
     Dosage: 5 MG, UNK (STRENGTH 5MG)
     Dates: start: 201207
  5. PANTOPRAZOLE [Concomitant]
     Dosage: 40 MG, UNK (STRENGTH 40MG)
     Dates: start: 2012
  6. TANDRILAX [Concomitant]
     Indication: PAIN
     Dosage: UNK, AS NEEDED

REACTIONS (4)
  - Immunosuppression [Unknown]
  - Skin discolouration [Unknown]
  - Rash macular [Unknown]
  - Pneumonia [Unknown]
